FAERS Safety Report 8512713-0 (Version None)
Quarter: 2012Q3

REPORT INFORMATION
  Report Type: 
  Country: None (occurrence: None)
  Receive Date: 20120716
  Receipt Date: 20120710
  Transmission Date: 20120928
  Serious: Yes (Other)
  Sender: FDA-Public Use
  Company Number: FR-B.I. PHARMACEUTICALS,INC./RIDGEFIELD-2012-EU-03518GD

PATIENT
  Sex: Female

DRUGS (4)
  1. TENOFOVIR DISOPEOXIL FUMARATE [Suspect]
     Indication: HIV INFECTION
     Dates: start: 20060201
  2. RITONAVIR [Suspect]
     Indication: HIV INFECTION
  3. EMTRICITABINE [Suspect]
     Indication: HIV INFECTION
     Dates: start: 20060201
  4. TIPRANAVIR [Suspect]
     Indication: HIV INFECTION

REACTIONS (1)
  - NEPHROLITHIASIS [None]
